FAERS Safety Report 8491318-4 (Version None)
Quarter: 2012Q3

REPORT INFORMATION
  Report Type: 
  Country: None (occurrence: None)
  Receive Date: 20120706
  Receipt Date: 20120629
  Transmission Date: 20120928
  Serious: Yes (Other)
  Sender: FDA-Public Use
  Company Number: PHHY2012BR056625

PATIENT
  Sex: Male

DRUGS (3)
  1. FORMOTEROL FUMARATE [Suspect]
  2. XOLAIR [Suspect]
     Route: 042
  3. BEROTEC [Concomitant]

REACTIONS (7)
  - PAIN [None]
  - EMPHYSEMA [None]
  - HYPERSENSITIVITY [None]
  - ASTHMA [None]
  - BRONCHITIS [None]
  - ANOSMIA [None]
  - BACK PAIN [None]
